FAERS Safety Report 7333375 (Version 2)
Quarter: 2013Q3

REPORT INFORMATION
  Report Type: Spontaneous
  Country: None (occurrence: None)
  Receive Date: 20100310
  Receipt Date: 20130709
  Transmission Date: 20140515
  Serious: Yes (Hospitalization, Other)
  Sender: FDA-Public Use
  Company Number: AUR-APL-2010-00557

PATIENT
  Age: 37 Year
  Sex: Male

DRUGS (1)
  1. PENICILLIN [Suspect]
     Indication: NEUROSYPHILIS
     Dosage: IV
     Route: 042

REACTIONS (4)
  - Jarisch-Herxheimer reaction [None]
  - Delusion [None]
  - Paranoia [None]
  - Hallucination, auditory [None]
